FAERS Safety Report 6421403-X (Version None)
Quarter: 2009Q4

REPORT INFORMATION
  Report Type: 
  Country: None (occurrence: None)
  Receive Date: 20091030
  Receipt Date: 20091021
  Transmission Date: 20100525
  Serious: Yes (Hospitalization)
  Sender: FDA-Public Use
  Company Number: FR-BRISTOL-MYERS SQUIBB COMPANY-14834097

PATIENT
  Age: 62 Year
  Sex: Female

DRUGS (11)
  1. GLUCOPHAGE [Suspect]
     Indication: TYPE 2 DIABETES MELLITUS
     Route: 048
     Dates: end: 20090926
  2. IOMERON-150 [Suspect]
     Indication: SCAN
     Dosage: 1DF=400MG/ML;400MG,SOLUTION FOR INJECTION
     Dates: start: 20090925, end: 20090925
  3. ZELITREX [Suspect]
     Indication: HERPES ZOSTER
     Dosage: 6DF(2DF,3 IN 1D)
     Route: 048
     Dates: start: 20090919, end: 20090926
  4. KARDEGIC [Concomitant]
  5. COVERSYL [Concomitant]
     Dosage: COVERSYL 5
  6. SECTRAL [Concomitant]
     Dosage: 1 IN MORNING;1 IN EVENING.
  7. NEXIUM [Concomitant]
     Dosage: INEXIUM 20MG
  8. TAHOR [Concomitant]
  9. PLAVIX [Concomitant]
  10. SKENAN [Concomitant]
     Dosage: 1 DOSAGE FORM IN THE MORNING AND 1 DOSAGE FORM IN THE EVENING
  11. ACTISKENAN [Concomitant]

REACTIONS (5)
  - CONFUSIONAL STATE [None]
  - HALLUCINATION [None]
  - HYPERTENSION [None]
  - OVERDOSE [None]
  - RENAL FAILURE ACUTE [None]
